FAERS Safety Report 6643523-7 (Version None)
Quarter: 2010Q1

REPORT INFORMATION
  Report Type: 
  Country: None (occurrence: None)
  Receive Date: 20100320
  Receipt Date: 20100318
  Transmission Date: 20100710
  Serious: Yes (Hospitalization)
  Sender: FDA-Public Use
  Company Number: US-ROXANE LABORATORIES, INC.-2010-RO-00283RO

PATIENT
  Age: 61 Year
  Sex: Male

DRUGS (3)
  1. METHADONE HCL [Suspect]
     Indication: DRUG DEPENDENCE
     Dosage: 200 MG
  2. MAGNESIUM [Concomitant]
     Indication: ARRHYTHMIA
  3. ISOPROTERENOL HCL [Concomitant]
     Indication: ARRHYTHMIA

REACTIONS (3)
  - ELECTROCARDIOGRAM QT PROLONGED [None]
  - PRESYNCOPE [None]
  - TORSADE DE POINTES [None]
